FAERS Safety Report 16205572 (Version 1)
Quarter: 2019Q2

REPORT INFORMATION
  Report Type: Report from Study
  Country: US (occurrence: US)
  Receive Date: 20190417
  Receipt Date: 20190417
  Transmission Date: 20190711
  Serious: Yes (Death)
  Sender: FDA-Public Use
  Company Number: US-BEH-2019101387

PATIENT
  Age: 75 Year
  Sex: Male
  Weight: 72.56 kg

DRUGS (1)
  1. ZEMAIRA [Suspect]
     Active Substance: .ALPHA.1-PROTEINASE INHIBITOR HUMAN
     Indication: ALPHA-1 ANTI-TRYPSIN DEFICIENCY
     Dosage: 9 VIALS,  BIW
     Route: 042
     Dates: start: 20150301

REACTIONS (1)
  - Death [Fatal]

NARRATIVE: CASE EVENT DATE: 20190331
